FAERS Safety Report 4360201-8 (Version None)
Quarter: 2004Q2

REPORT INFORMATION
  Report Type: 
  Country: None (occurrence: None)
  Receive Date: 20040518
  Receipt Date: 20040518
  Transmission Date: 20050107
  Serious: Yes (Hospitalization)
  Sender: FDA-Public Use
  Company Number: None

PATIENT
  Sex: Female
  Weight: 61.2356 kg

DRUGS (6)
  1. NEXIUM [Suspect]
     Indication: GASTROOESOPHAGEAL REFLUX DISEASE
     Dosage: 40 MG BID ORAL
     Route: 048
     Dates: start: 20040301, end: 20040324
  2. NEXIUM [Suspect]
     Indication: PROPHYLAXIS
     Dosage: 40 MG BID ORAL
     Route: 048
     Dates: start: 20040301, end: 20040324
  3. TOPROL-XL [Concomitant]
  4. SYNTHROID [Concomitant]
  5. MODURETIC 5-50 [Concomitant]
  6. ZOCOR [Concomitant]

REACTIONS (1)
  - HYPERTENSION [None]
